FAERS Safety Report 8395163-X (Version None)
Quarter: 2012Q2

REPORT INFORMATION
  Report Type: 
  Country: None (occurrence: None)
  Receive Date: 20120530
  Receipt Date: 20120528
  Transmission Date: 20120825
  Serious: No
  Sender: FDA-Public Use
  Company Number: AR-PFIZER INC-2012122257

PATIENT
  Age: 60 Year
  Sex: Male

DRUGS (3)
  1. AMLODIPINE [Concomitant]
     Dosage: UNK
     Route: 048
  2. LEVOTHYROXINE [Concomitant]
     Dosage: UNK
  3. SUTENT [Suspect]
     Indication: RENAL CANCER
     Dosage: 50 MG, FOR 28 DAYS AND WITH RESTING PERIOD OF 10 DAYS
     Route: 048
     Dates: start: 20090101

REACTIONS (2)
  - STOMATITIS [None]
  - BLISTER [None]
